FAERS Safety Report 6542068-2 (Version None)
Quarter: 2010Q1

REPORT INFORMATION
  Report Type: 
  Country: None (occurrence: None)
  Receive Date: 20100119
  Receipt Date: 20100111
  Transmission Date: 20100710
  Serious: Yes (Other)
  Sender: FDA-Public Use
  Company Number: DE-ELI_LILLY_AND_COMPANY-DE201001001542

PATIENT
  Age: 53 Year
  Sex: Female

DRUGS (2)
  1. FORTEO [Suspect]
     Indication: OSTEOPOROSIS
     Dosage: UNK, UNKNOWN
     Route: 058
     Dates: start: 20091023, end: 20091216
  2. SYNTESTAN [Concomitant]

REACTIONS (8)
  - COORDINATION ABNORMAL [None]
  - DEPRESSION [None]
  - DRY MOUTH [None]
  - DYSGEUSIA [None]
  - HYPERACUSIS [None]
  - TACHYCARDIA [None]
  - VENTRICULAR EXTRASYSTOLES [None]
  - VESTIBULAR DISORDER [None]
